FAERS Safety Report 5786235-4 (Version None)
Quarter: 2008Q2

REPORT INFORMATION
  Report Type: 
  Country: None (occurrence: None)
  Receive Date: 20080624
  Receipt Date: 20080616
  Transmission Date: 20081010
  Serious: Yes (Other)
  Sender: FDA-Public Use
  Company Number: JP-PFIZER INC-2008051270

PATIENT
  Sex: Female

DRUGS (2)
  1. DETRUSITOL SR [Suspect]
     Indication: HYPERTONIC BLADDER
     Dosage: DAILY DOSE:2MG
     Route: 048
     Dates: start: 20070704, end: 20071227
  2. ERYTHROMYCIN [Suspect]
     Dates: start: 20070929, end: 20071227

REACTIONS (1)
  - HENOCH-SCHONLEIN PURPURA [None]
